FAERS Safety Report 18293954 (Version 1)
Quarter: 2020Q3

REPORT INFORMATION
  Report Type: Spontaneous
  Country: CN (occurrence: CN)
  Receive Date: 20200921
  Receipt Date: 20200921
  Transmission Date: 20201103
  Serious: Yes (Hospitalization, Other)
  Sender: FDA-Public Use
  Company Number: CN-BAXTER-2020BAX019036

PATIENT
  Age: 26 Year
  Sex: Female
  Weight: 49.1 kg

DRUGS (4)
  1. ENDOXAN [Suspect]
     Active Substance: CYCLOPHOSPHAMIDE
     Indication: ACUTE LYMPHOCYTIC LEUKAEMIA
     Dosage: CYCLOPHOSPHAMIDE FOR INJECTION +  0.9% SODIUM CHLORIDE INJECTION 250 ML
     Route: 041
     Dates: start: 20200903, end: 20200903
  2. 0.9% SODIUM CHLORIDE INJECTION [Suspect]
     Active Substance: SODIUM CHLORIDE
     Indication: MEDICATION DILUTION
     Dosage: CYCLOPHOSPHAMIDE FOR INJECTION + 0.9% SODIUM CHLORIDE INJECTION
     Route: 041
     Dates: start: 20200903, end: 20200903
  3. 0.9% SODIUM CHLORIDE INJECTION [Suspect]
     Active Substance: SODIUM CHLORIDE
     Dosage: CYCLOPHOSPHAMIDE FOR INJECTION + 0.9%SODIUM CHLORIDE INJECTION DOSE RE?INTRODUCED
     Route: 041
     Dates: start: 20200904, end: 20200904
  4. ENDOXAN [Suspect]
     Active Substance: CYCLOPHOSPHAMIDE
     Dosage: CYCLOPHOSPHAMIDE FOR INJECTION + 0.9% SODIUM CHLORIDE INJECTION 250 ML DOSE REINTRODUCED
     Route: 041
     Dates: start: 20200904, end: 20200904

REACTIONS (8)
  - Vomiting [Recovering/Resolving]
  - Nausea [Recovering/Resolving]
  - Paraesthesia oral [Recovering/Resolving]
  - Abdominal pain [Recovering/Resolving]
  - Chest pain [Recovering/Resolving]
  - Abdominal discomfort [Recovering/Resolving]
  - Chest discomfort [Recovering/Resolving]
  - Hypoaesthesia oral [Recovering/Resolving]

NARRATIVE: CASE EVENT DATE: 20200903
